FAERS Safety Report 21096910 (Version 3)
Quarter: 2022Q3

REPORT INFORMATION
  Report Type: Report from Study
  Country: CA (occurrence: CA)
  Receive Date: 20220718
  Receipt Date: 20220911
  Transmission Date: 20221026
  Serious: Yes (Death, Disabling, Other)
  Sender: FDA-Public Use
  Company Number: CA-BoehringerIngelheim-2022-BI-182155

PATIENT
  Age: 67 Year
  Sex: Male

DRUGS (7)
  1. OFEV [Suspect]
     Active Substance: NINTEDANIB
     Indication: Idiopathic pulmonary fibrosis
     Route: 048
     Dates: start: 20220627
  2. OFEV [Suspect]
     Active Substance: NINTEDANIB
     Indication: Interstitial lung disease
  3. PREDNISONE [Concomitant]
     Active Substance: PREDNISONE
     Indication: Product used for unknown indication
     Dosage: WEANING 5 TABS FOR 2 WEEKS
  4. PREDNISONE [Concomitant]
     Active Substance: PREDNISONE
     Dosage: 4 TABS FOR 2WEEKS
  5. PREDNISONE [Concomitant]
     Active Substance: PREDNISONE
     Dosage: 3 TABS FOR 2 WEEKS
  6. PREDNISONE [Concomitant]
     Active Substance: PREDNISONE
     Dosage: 2 TABS FOR 2 WEEKS
  7. PREDNISONE [Concomitant]
     Active Substance: PREDNISONE
     Dosage: 1 TAB FOR 2 WEEKS

REACTIONS (2)
  - Death [Fatal]
  - Dyspnoea [Not Recovered/Not Resolved]

NARRATIVE: CASE EVENT DATE: 20220801
